FAERS Safety Report 23035407 (Version 2)
Quarter: 2023Q4

REPORT INFORMATION
  Report Type: Report from Study
  Country: US (occurrence: US)
  Receive Date: 20231005
  Receipt Date: 20231228
  Transmission Date: 20240110
  Serious: No
  Sender: FDA-Public Use
  Company Number: US-ACADIA PHARMACEUTICALS INC.-ACA-2023-TRF-004086

PATIENT
  Sex: Female

DRUGS (1)
  1. DAYBUE [Suspect]
     Active Substance: TROFINETIDE
     Indication: Rett syndrome
     Dosage: 50 MILLILITER
     Route: 065
     Dates: start: 202307

REACTIONS (4)
  - Drug effect less than expected [Unknown]
  - Drug ineffective [Unknown]
  - Diarrhoea [Unknown]
  - Diarrhoea [Unknown]
